FAERS Safety Report 20052969 (Version 4)
Quarter: 2022Q1

REPORT INFORMATION
  Report Type: Spontaneous
  Country: JP (occurrence: None)
  Receive Date: 20211110
  Receipt Date: 20220111
  Transmission Date: 20220423
  Serious: Yes (Hospitalization)
  Sender: FDA-Public Use
  Company Number: 2021A789488

PATIENT
  Age: 80 Year
  Sex: Male

DRUGS (12)
  1. DAPAGLIFLOZIN [Suspect]
     Active Substance: DAPAGLIFLOZIN
     Indication: Type 2 diabetes mellitus
     Dosage: DOSE UNKNOWN
     Route: 048
     Dates: start: 20210513, end: 20211020
  2. BEOVA [Concomitant]
  3. SENNOSIDES [Concomitant]
     Active Substance: SENNOSIDES
  4. DUTASTERIDE [Concomitant]
     Active Substance: DUTASTERIDE
  5. NAFTOPIDIL [Concomitant]
     Active Substance: NAFTOPIDIL
  6. FUROSEMIDE [Concomitant]
     Active Substance: FUROSEMIDE
  7. VONOPRAZAN FUMARATE [Concomitant]
     Active Substance: VONOPRAZAN FUMARATE
  8. SPIRONOLACTONE [Concomitant]
     Active Substance: SPIRONOLACTONE
  9. XARELTO [Concomitant]
     Active Substance: RIVAROXABAN
  10. ROZEREM [Concomitant]
     Active Substance: RAMELTEON
  11. MAGNESIUM OXIDE [Concomitant]
     Active Substance: MAGNESIUM OXIDE
  12. BISACODYL [Concomitant]
     Active Substance: BISACODYL

REACTIONS (2)
  - Spinal compression fracture [Recovering/Resolving]
  - Decreased appetite [Not Recovered/Not Resolved]

NARRATIVE: CASE EVENT DATE: 20210911
